FAERS Safety Report 7126890-X (Version None)
Quarter: 2010Q4

REPORT INFORMATION
  Report Type: 
  Country: None (occurrence: None)
  Receive Date: 20101129
  Receipt Date: 20091213
  Transmission Date: 20110411
  Serious: No
  Sender: FDA-Public Use
  Company Number: US-PFIZER INC-2009310304

PATIENT
  Age: 68 Year
  Sex: Male
  Weight: 99.8 kg

DRUGS (10)
  1. VIAGRA [Suspect]
     Indication: ERECTILE DYSFUNCTION
     Dosage: 50 MG, UNK
     Route: 048
     Dates: start: 20091212
  2. LANTUS [Concomitant]
     Indication: DIABETES MELLITUS
     Dosage: 50 UNITS SOMETIMES
  3. NOVOLOG [Concomitant]
     Indication: DIABETES MELLITUS
     Dosage: 7 UNITS SOMETIMES
  4. HUMULIN R [Concomitant]
     Indication: DIABETES MELLITUS
     Dosage: 40 UNITS SOMETIMES
  5. ACTOS [Concomitant]
     Indication: DIABETES MELLITUS
     Dosage: UNK
     Route: 048
     Dates: start: 20040101
  6. COREG [Concomitant]
     Dosage: 12.5 MG, 2X/DAY
     Route: 048
     Dates: start: 20040101
  7. LISINOPRIL [Concomitant]
     Dosage: 20 MG, 1X/DAY
  8. DIGOXIN [Concomitant]
     Dosage: 0.125 MG, 1X/DAY
     Route: 048
  9. PLAVIX [Concomitant]
     Dosage: 75 MG, 1X/DAY
  10. TRICOR [Concomitant]
     Dosage: 145 MG, 1X/DAY
     Route: 048

REACTIONS (1)
  - ERECTILE DYSFUNCTION [None]
